FAERS Safety Report 7267501-2 (Version None)
Quarter: 2011Q1

REPORT INFORMATION
  Report Type: 
  Country: None (occurrence: None)
  Receive Date: 20110121
  Receipt Date: 20110112
  Transmission Date: 20110831
  Serious: Yes (Hospitalization)
  Sender: FDA-Public Use
  Company Number: 2011AM003663

PATIENT
  Sex: Male

DRUGS (1)
  1. SYMLIN [Suspect]
     Indication: PRODUCT USED FOR UNKNOWN INDICATION
     Dosage: 60 MCG; SC
     Route: 058

REACTIONS (1)
  - HOSPITALISATION [None]
